FAERS Safety Report 9589319 (Version 1)
Quarter: 2013Q4

REPORT INFORMATION
  Report Type: Spontaneous
  Country: US (occurrence: US)
  Receive Date: 20131003
  Receipt Date: 20131003
  Transmission Date: 20140711
  Serious: No
  Sender: FDA-Public Use
  Company Number: US-AMGEN-USASP2012069473

PATIENT
  Sex: Female

DRUGS (10)
  1. ENBREL [Suspect]
     Indication: RHEUMATOID ARTHRITIS
     Dosage: 50 MG/ML, QWK
     Route: 058
  2. PREDNISONE [Concomitant]
     Dosage: PAK 5 MG, UNK
  3. PAROXETINE                         /00830802/ [Concomitant]
     Dosage: 10 MG, UNK
  4. HYDROXYCHLOROQUINE [Concomitant]
     Dosage: 200 MG, UNK
  5. SULFASALAZIN [Concomitant]
     Dosage: 500 MG, UNK
  6. HYDROCODONE [Concomitant]
     Dosage: 5-500 MG
  7. FISH OIL [Concomitant]
     Dosage: UNK
  8. GLUCOSAMIN CHONDR [Concomitant]
     Dosage: UNK
  9. MAGNESIUM [Concomitant]
     Dosage: 300 MG, UNK
  10. CALCIUM [Concomitant]
     Dosage: 500 CHW/D

REACTIONS (1)
  - Injection site pain [Unknown]
